FAERS Safety Report 8458641-0 (Version None)
Quarter: 2012Q2

REPORT INFORMATION
  Report Type: 
  Country: None (occurrence: None)
  Receive Date: 20120622
  Receipt Date: 20120618
  Transmission Date: 20120825
  Serious: Yes (Hospitalization)
  Sender: FDA-Public Use
  Company Number: US-PFIZER INC-2012147193

PATIENT
  Sex: Female
  Weight: 90.703 kg

DRUGS (4)
  1. PAMELOR [Suspect]
     Indication: ANXIETY
  2. PRISTIQ [Suspect]
     Indication: DEPRESSION
     Dosage: 100 MG, DAILY
     Dates: start: 20090101
  3. PRISTIQ [Suspect]
     Indication: ANXIETY
  4. PAMELOR [Suspect]
     Indication: DEPRESSION
     Dosage: UNK
     Dates: start: 20111101, end: 20111101

REACTIONS (4)
  - NERVOUSNESS [None]
  - PAROSMIA [None]
  - HALLUCINATION [None]
  - SKIN DISCOLOURATION [None]
